FAERS Safety Report 5387614-X (Version None)
Quarter: 2007Q3

REPORT INFORMATION
  Report Type: 
  Country: None (occurrence: None)
  Receive Date: 20070712
  Receipt Date: 20070712
  Transmission Date: 20080115
  Serious: Yes (Hospitalization, Disabling)
  Sender: FDA-Public Use
  Company Number: None

PATIENT
  Sex: Male
  Weight: 82 kg

DRUGS (2)
  1. FLEBOGAMMA [Suspect]
     Indication: IDIOPATHIC THROMBOCYTOPENIC PURPURA
     Dosage: SEE ATTACHED
  2. FLEBOGAMMA [Suspect]

REACTIONS (4)
  - CEREBRAL INFARCTION [None]
  - CHEST PAIN [None]
  - ISCHAEMIC STROKE [None]
  - SUBDURAL HAEMATOMA [None]
